FAERS Safety Report 21700925 (Version 1)
Quarter: 2022Q4

REPORT INFORMATION
  Report Type: Spontaneous
  Country: US (occurrence: None)
  Receive Date: 20221207
  Receipt Date: 20221207
  Transmission Date: 20230113
  Serious: Yes (Hospitalization)
  Sender: FDA-Public Use
  Company Number: None

PATIENT
  Age: 79 Year
  Sex: Male
  Weight: 55.79 kg

DRUGS (2)
  1. APIXABAN [Suspect]
     Active Substance: APIXABAN
     Indication: Atrial fibrillation
     Dosage: 5 MG BID PO?
     Route: 048
     Dates: start: 20190219, end: 20221101
  2. ASPIRIN [Suspect]
     Active Substance: ASPIRIN
     Indication: Product used for unknown indication
     Dosage: 81 MG EVERY DAY PO?
     Route: 048
     Dates: start: 20221014, end: 20221101

REACTIONS (5)
  - Melaena [None]
  - Haematochezia [None]
  - Haemoglobin decreased [None]
  - Gastritis erosive [None]
  - Erosive duodenitis [None]

NARRATIVE: CASE EVENT DATE: 20221101
